FAERS Safety Report 5744401-8 (Version None)
Quarter: 2008Q2

REPORT INFORMATION
  Report Type: 
  Country: None (occurrence: None)
  Receive Date: 20080520
  Receipt Date: 20080514
  Transmission Date: 20081010
  Serious: Yes (Death, Hospitalization)
  Sender: FDA-Public Use
  Company Number: GB-ELI_LILLY_AND_COMPANY-GB200801000573

PATIENT
  Sex: Female

DRUGS (4)
  1. HUMALOG MIX 75/25 [Suspect]
     Indication: DIABETES MELLITUS
     Dosage: UNK, UNKNOWN
     Route: 065
  2. HUMALOG MIX 75/25 [Suspect]
     Dosage: 16 U, EACH MORNING
     Route: 065
  3. HUMALOG MIX 75/25 [Suspect]
     Dosage: 8 U, EACH EVENING
     Route: 065
  4. HUMALOG MIX 75/25 [Suspect]
     Dosage: 25 U, GIVEN ONE EVENING INSTEAD OF 8 UNITS
     Route: 065

REACTIONS (4)
  - DEATH [None]
  - DRUG ADMINISTRATION ERROR [None]
  - HYPOGLYCAEMIA [None]
  - OVERDOSE [None]
